FAERS Safety Report 7634399-X (Version None)
Quarter: 2011Q3

REPORT INFORMATION
  Report Type: 
  Country: None (occurrence: None)
  Receive Date: 20110725
  Receipt Date: 20110714
  Transmission Date: 20111222
  Serious: Yes (Other)
  Sender: FDA-Public Use
  Company Number: PHHY2011JP63671

PATIENT
  Age: 57 Year
  Sex: Female

DRUGS (3)
  1. ZOMETA [Suspect]
     Indication: METASTASES TO BONE
     Route: 041
  2. CHEMOTHERAPEUTICS [Concomitant]
  3. HORMONES [Concomitant]

REACTIONS (1)
  - PELVIC FRACTURE [None]
